FAERS Safety Report 19110878 (Version 1)
Quarter: 2021Q2

REPORT INFORMATION
  Report Type: Spontaneous
  Country: US (occurrence: US)
  Receive Date: 20210409
  Receipt Date: 20210409
  Transmission Date: 20210717
  Serious: No
  Sender: FDA-Public Use
  Company Number: US-GLAXOSMITHKLINE-US2021AMR073335

PATIENT
  Sex: Female

DRUGS (2)
  1. ZEJULA [Suspect]
     Active Substance: NIRAPARIB
     Dosage: 200 MG, QD
     Dates: start: 202103
  2. ZEJULA [Suspect]
     Active Substance: NIRAPARIB
     Indication: DELTA-BETA THALASSAEMIA
     Dosage: 300 MG, QD
     Dates: start: 20200815, end: 202012

REACTIONS (2)
  - Off label use [Unknown]
  - Product use in unapproved indication [Unknown]
